FAERS Safety Report 9909217 (Version 2)
Quarter: 2014Q1

REPORT INFORMATION
  Report Type: Report from Study
  Country: US (occurrence: US)
  Receive Date: 20140219
  Receipt Date: 20140303
  Transmission Date: 20141002
  Serious: Yes (Other)
  Sender: FDA-Public Use
  Company Number: US-ACTELION-A-NJ2014-94916

PATIENT
  Age: 47 Year
  Sex: Female

DRUGS (4)
  1. VELETRI [Suspect]
     Indication: PULMONARY ARTERIAL HYPERTENSION
     Dosage: 20.5 NG/KG, PER MIN
     Route: 042
     Dates: start: 201212
  2. LETAIRIS [Concomitant]
  3. SILDENAFIL [Concomitant]
  4. COUMADIN [Concomitant]

REACTIONS (2)
  - Sarcoma [Recovering/Resolving]
  - Radiotherapy [Unknown]
